FAERS Safety Report 5410455-1 (Version None)
Quarter: 2007Q3

REPORT INFORMATION
  Report Type: 
  Country: None (occurrence: None)
  Receive Date: 20070810
  Receipt Date: 20061215
  Transmission Date: 20080115
  Serious: No
  Sender: FDA-Public Use
  Company Number: A0631732A

PATIENT
  Age: 44 Year
  Sex: Female

DRUGS (4)
  1. PAXIL [Suspect]
     Indication: DRUG USE FOR UNKNOWN INDICATION
     Dosage: 20MG THREE TIMES PER DAY
     Route: 048
     Dates: start: 20061207, end: 20061211
  2. XANAX [Concomitant]
  3. AMBIEN [Concomitant]
  4. ZITHROMAX [Concomitant]

REACTIONS (1)
  - RASH [None]
